FAERS Safety Report 22152957 (Version 1)
Quarter: 2023Q1

REPORT INFORMATION
  Report Type: Spontaneous
  Country: US (occurrence: None)
  Receive Date: 20230329
  Receipt Date: 20230329
  Transmission Date: 20230417
  Serious: Yes (Hospitalization, Disabling)
  Sender: FDA-Public Use
  Company Number: None

PATIENT
  Age: 31 Year
  Sex: Male
  Weight: 108.45 kg

DRUGS (8)
  1. PROPOFOL [Suspect]
     Active Substance: PROPOFOL
     Indication: Atrial fibrillation
     Dosage: OTHER FREQUENCY : EVERY 5 MINUTES;?
     Route: 042
  2. PROPOFOL [Suspect]
     Active Substance: PROPOFOL
     Indication: Cardiac ablation
  3. TOPROL XL [Concomitant]
     Active Substance: METOPROLOL SUCCINATE
  4. FLECAINIDE [Concomitant]
     Active Substance: FLECAINIDE
  5. XANAX [Concomitant]
     Active Substance: ALPRAZOLAM
  6. FLUVOXAMINE [Concomitant]
     Active Substance: FLUVOXAMINE
  7. REMERON [Concomitant]
     Active Substance: MIRTAZAPINE
  8. XARELTO [Concomitant]
     Active Substance: RIVAROXABAN

REACTIONS (7)
  - Adverse drug reaction [None]
  - Delayed recovery from anaesthesia [None]
  - Chest pain [None]
  - Post procedural discomfort [None]
  - Painful respiration [None]
  - Dyspnoea [None]
  - Sedation complication [None]

NARRATIVE: CASE EVENT DATE: 20221213
